FAERS Safety Report 9625151 (Version 1)
Quarter: 2013Q4

REPORT INFORMATION
  Report Type: Spontaneous
  Country: US (occurrence: None)
  Receive Date: 20131015
  Receipt Date: 20131015
  Transmission Date: 20140711
  Serious: Yes (Other)
  Sender: FDA-Public Use
  Company Number: None

PATIENT
  Age: 73 Year
  Sex: Female

DRUGS (1)
  1. INCIVEK 375 MG [Suspect]
     Indication: HEPATITIS C
     Route: 048
     Dates: start: 20131002, end: 20131009

REACTIONS (1)
  - Blister [None]
